FAERS Safety Report 25590321 (Version 1)
Quarter: 2025Q3

REPORT INFORMATION
  Report Type: Spontaneous
  Country: US (occurrence: None)
  Receive Date: 20250721
  Receipt Date: 20250721
  Transmission Date: 20251020
  Serious: Yes (Death)
  Sender: FDA-CTU
  Company Number: None

PATIENT
  Sex: Female

DRUGS (19)
  1. TIVICAY [Suspect]
     Active Substance: DOLUTEGRAVIR SODIUM
     Indication: HIV infection
     Dosage: 50 MG DAILY ORAL
     Route: 048
  2. PREZCOBIX [Suspect]
     Active Substance: COBICISTAT\DARUNAVIR ETHANOLATE
     Dosage: DAILY ORAL ?
     Route: 048
  3. acetaminophen 325mg [Concomitant]
  4. BUPROPION HYDROCHLORIDE [Concomitant]
     Active Substance: BUPROPION HYDROCHLORIDE
  5. Triphrocaps capsules [Concomitant]
  6. ELIQUIS [Concomitant]
     Active Substance: APIXABAN
  7. Ipratropium/albuterol inhalation solution [Concomitant]
  8. LORATADINE [Concomitant]
     Active Substance: LORATADINE
  9. FLUTICASONE [Concomitant]
     Active Substance: FLUTICASONE
  10. HYDROXYZINE [Concomitant]
     Active Substance: HYDROXYZINE HYDROCHLORIDE
  11. multivitamin tablet [Concomitant]
  12. ATORVASTATIN [Concomitant]
     Active Substance: ATORVASTATIN
  13. ALLOPURINOL [Concomitant]
     Active Substance: ALLOPURINOL
  14. ondansetron 4mg tablet [Concomitant]
  15. aspirin 81mg EC tablet [Concomitant]
  16. famotidine 20mg tablet [Concomitant]
  17. calcium carbonate 500mg chewable tablet [Concomitant]
  18. pantoprazole 40mg tablet [Concomitant]
  19. GABAPENTIN [Concomitant]
     Active Substance: GABAPENTIN

REACTIONS (1)
  - Death [None]
